FAERS Safety Report 5780006-0 (Version None)
Quarter: 2008Q2

REPORT INFORMATION
  Report Type: 
  Country: None (occurrence: None)
  Receive Date: 20080620
  Receipt Date: 20080509
  Transmission Date: 20081010
  Serious: No
  Sender: FDA-Public Use
  Company Number: US-ABBOTT-08P-163-0451303-00

PATIENT
  Sex: Male
  Weight: 72.64 kg

DRUGS (3)
  1. K-TAB [Suspect]
     Indication: MINERAL SUPPLEMENTATION
     Route: 048
     Dates: start: 19880101
  2. PROPRANOLOL [Concomitant]
     Indication: BLOOD PRESSURE
     Route: 048
  3. WHITE BLOOD SUGAR TABLET [Concomitant]
     Indication: DIABETES MELLITUS
     Route: 048

REACTIONS (1)
  - MEDICATION RESIDUE [None]
